FAERS Safety Report 8190055-3 (Version None)
Quarter: 2012Q1

REPORT INFORMATION
  Report Type: 
  Country: None (occurrence: None)
  Receive Date: 20120307
  Receipt Date: 20120228
  Transmission Date: 20120608
  Serious: Yes (Other)
  Sender: FDA-Public Use
  Company Number: GB-JNJFOC-20110906263

PATIENT
  Sex: Female

DRUGS (4)
  1. REMICADE [Suspect]
     Indication: PSORIASIS
     Route: 042
  2. REMICADE [Suspect]
     Route: 042
     Dates: start: 20090730, end: 20110902
  3. METHOTREXATE [Concomitant]
     Route: 065
     Dates: start: 20090701
  4. REMICADE [Suspect]
     Route: 042

REACTIONS (5)
  - HYPOTENSION [None]
  - DYSPNOEA [None]
  - TACHYCARDIA [None]
  - INFUSION RELATED REACTION [None]
  - PALPITATIONS [None]
